FAERS Safety Report 21255627 (Version 1)
Quarter: 2022Q3

REPORT INFORMATION
  Report Type: Spontaneous
  Country: GB (occurrence: GB)
  Receive Date: 20220825
  Receipt Date: 20220825
  Transmission Date: 20221026
  Serious: Yes (Death, Hospitalization, Other)
  Sender: FDA-Public Use
  Company Number: GB-MHRA-MED-202208231803162270-JZSCM

PATIENT
  Age: 47 Year
  Sex: Male

DRUGS (2)
  1. YESCARTA [Suspect]
     Active Substance: AXICABTAGENE CILOLEUCEL
     Indication: B-cell lymphoma
     Dosage: UNK
     Route: 065
     Dates: start: 20220606
  2. OXYGEN [Concomitant]
     Active Substance: OXYGEN

REACTIONS (1)
  - Cytokine release syndrome [Fatal]
